FAERS Safety Report 19598000 (Version 1)
Quarter: 2021Q3

REPORT INFORMATION
  Report Type: Spontaneous
  Country: US (occurrence: US)
  Receive Date: 20210722
  Receipt Date: 20210722
  Transmission Date: 20211014
  Serious: Yes (Other)
  Sender: FDA-Public Use
  Company Number: None

PATIENT
  Sex: Female

DRUGS (2)
  1. ALPHAGAN P [Suspect]
     Active Substance: BRIMONIDINE TARTRATE
  2. LATANOPROST. [Suspect]
     Active Substance: LATANOPROST

REACTIONS (3)
  - Erythema [None]
  - Dizziness [None]
  - Burning sensation [None]
